FAERS Safety Report 5622540-X (Version None)
Quarter: 2008Q1

REPORT INFORMATION
  Report Type: 
  Country: None (occurrence: None)
  Receive Date: 20080211
  Receipt Date: 20080207
  Transmission Date: 20080703
  Serious: Yes (Hospitalization)
  Sender: FDA-Public Use
  Company Number: US-GILEAD-2008-0015246

PATIENT
  Sex: Female
  Weight: 77.18 kg

DRUGS (8)
  1. LETAIRIS [Suspect]
     Indication: PULMONARY HYPERTENSION
     Route: 048
  2. REVATIO [Concomitant]
     Route: 048
  3. COUMADIN [Concomitant]
     Route: 048
  4. LASIX [Concomitant]
     Route: 048
  5. PREDNISONE TAB [Concomitant]
     Route: 048
  6. ATENOLOL [Concomitant]
     Route: 048
  7. DIGOXIN [Concomitant]
     Route: 048
  8. CALCIUM GLUCONATE [Concomitant]
     Route: 048

REACTIONS (1)
  - OEDEMA [None]
